FAERS Safety Report 15160459 (Version 2)
Quarter: 2018Q3

REPORT INFORMATION
  Report Type: Spontaneous
  Country: FR (occurrence: FR)
  Receive Date: 20180718
  Receipt Date: 20180727
  Transmission Date: 20181010
  Serious: Yes (Other)
  Sender: FDA-Public Use
  Company Number: FR-TEVA-2018-FR-911940

PATIENT
  Age: 47 Year
  Sex: Male

DRUGS (3)
  1. TRAMADOL (CHLORHYDRATE DE) [Suspect]
     Active Substance: TRAMADOL HYDROCHLORIDE
     Indication: ARTHRALGIA
     Dosage: 300 MILLIGRAM DAILY;
     Route: 048
     Dates: start: 201801, end: 20180428
  2. ZOPICLONE [Suspect]
     Active Substance: ZOPICLONE
     Indication: WITHDRAWAL SYNDROME
     Dosage: 1 DOSAGE FORMS DAILY;
     Route: 048
     Dates: start: 20180428, end: 20180502
  3. OXAZEPAM. [Suspect]
     Active Substance: OXAZEPAM
     Indication: WITHDRAWAL SYNDROME
     Dosage: 30 MILLIGRAM DAILY;
     Route: 048
     Dates: start: 20180428, end: 20180502

REACTIONS (2)
  - Drug withdrawal syndrome [Recovering/Resolving]
  - Intentional product misuse [Recovered/Resolved]

NARRATIVE: CASE EVENT DATE: 20180428
